FAERS Safety Report 23487490 (Version 1)
Quarter: 2024Q1

REPORT INFORMATION
  Report Type: Spontaneous
  Country: ZA (occurrence: None)
  Receive Date: 20240206
  Receipt Date: 20240206
  Transmission Date: 20240410
  Serious: Yes (Hospitalization, Other)
  Sender: FDA-Public Use
  Company Number: 2024A024501

PATIENT
  Age: 56 Year
  Sex: Female

DRUGS (5)
  1. DAPAGLIFLOZIN PROPANEDIOL [Suspect]
     Active Substance: DAPAGLIFLOZIN PROPANEDIOL
     Indication: Diabetes mellitus
     Dosage: 10.0MG UNKNOWN
     Route: 048
  2. FUROSEMIDE [Concomitant]
     Active Substance: FUROSEMIDE
     Indication: Hypertension
     Dosage: 40.0MG UNKNOWN
     Route: 048
  3. PENDINE [Concomitant]
     Indication: Hypertension
     Dosage: 10.0MG UNKNOWN
     Route: 048
  4. MYLAN INDAPAMIDE [Concomitant]
     Indication: Hypertension
     Dosage: 2.5MG UNKNOWN
     Route: 048
  5. METFORMIN HYDROCHLORIDE [Concomitant]
     Active Substance: METFORMIN HYDROCHLORIDE
     Indication: Diabetes mellitus
     Dosage: 500.0MG UNKNOWN
     Route: 048

REACTIONS (2)
  - Peripheral swelling [Unknown]
  - Pleural effusion [Unknown]
